FAERS Safety Report 7462051-2 (Version None)
Quarter: 2011Q1

REPORT INFORMATION
  Report Type: 
  Country: None (occurrence: None)
  Receive Date: 20110302
  Receipt Date: 20101109
  Transmission Date: 20110831
  Serious: Yes (Death, Hospitalization)
  Sender: FDA-Public Use
  Company Number: 163-21880-10111309

PATIENT
  Age: 62 Year
  Sex: Female

DRUGS (11)
  1. REVLIMID [Suspect]
     Indication: MULTIPLE MYELOMA
     Dosage: 25 MG, DAILY X21D/28D, PO
     Route: 048
     Dates: start: 20100127, end: 20100629
  2. LASIX [Concomitant]
  3. ASPIRIN [Concomitant]
  4. POTASSIUM CHLORIDE [Concomitant]
  5. COLACE (DOCUSATE SODIUM) [Concomitant]
  6. CALCIUM (CALCIUM) [Concomitant]
  7. HYDRALAZINE HCL [Concomitant]
  8. DECADRON [Concomitant]
  9. ALBUTEROL [Concomitant]
  10. AREDIA [Concomitant]
  11. VERAPAMIL [Concomitant]

REACTIONS (4)
  - DEATH [None]
  - RESPIRATORY FAILURE [None]
  - FEBRILE NEUTROPENIA [None]
  - DISEASE PROGRESSION [None]
